FAERS Safety Report 18065005 (Version 3)
Quarter: 2020Q3

REPORT INFORMATION
  Report Type: Spontaneous
  Country: CA (occurrence: CA)
  Receive Date: 20200724
  Receipt Date: 20200821
  Transmission Date: 20201103
  Serious: Yes (Hospitalization, Other)
  Sender: FDA-Public Use
  Company Number: CA-PFIZER INC-2020277590

PATIENT
  Age: 6 Month
  Sex: Female

DRUGS (14)
  1. CEFOTAXIME [Suspect]
     Active Substance: CEFOTAXIME SODIUM
     Indication: MENINGITIS
  2. CEFOTAXIME [Suspect]
     Active Substance: CEFOTAXIME SODIUM
     Indication: BACILLUS INFECTION
  3. CEFOTAXIME [Suspect]
     Active Substance: CEFOTAXIME SODIUM
     Indication: PLEOCYTOSIS
     Dosage: UNK (3 WEEKS OF EMPIRICALLY WITH VANCOMYCIN)
  4. RIFAMPIN. [Suspect]
     Active Substance: RIFAMPIN
     Indication: PLEOCYTOSIS
  5. RIFAMPIN. [Suspect]
     Active Substance: RIFAMPIN
     Indication: BACILLUS INFECTION
  6. VANCOMYCIN HCL [Suspect]
     Active Substance: VANCOMYCIN HYDROCHLORIDE
     Indication: PLEOCYTOSIS
     Dosage: UNK
  7. VANCOMYCIN HCL [Suspect]
     Active Substance: VANCOMYCIN HYDROCHLORIDE
     Indication: MENINGITIS
     Dosage: UNK (3 WEEKS OF EMPIRICALLY WITH VANCOMYCIN)
  8. RIFAMPIN. [Suspect]
     Active Substance: RIFAMPIN
     Indication: MENINGITIS
     Dosage: UNK
  9. AMPICILLIN [Suspect]
     Active Substance: AMPICILLIN
     Indication: MENINGITIS HAEMOPHILUS
     Dosage: UNK
  10. VANCOMYCIN HCL [Suspect]
     Active Substance: VANCOMYCIN HYDROCHLORIDE
     Indication: SEPSIS
  11. AMPICILLIN [Suspect]
     Active Substance: AMPICILLIN
     Indication: SEPSIS
  12. RIFAMPIN. [Suspect]
     Active Substance: RIFAMPIN
     Indication: SEPSIS
  13. CEFOTAXIME [Suspect]
     Active Substance: CEFOTAXIME SODIUM
     Indication: SEPSIS
  14. VANCOMYCIN HCL [Suspect]
     Active Substance: VANCOMYCIN HYDROCHLORIDE
     Indication: BACILLUS INFECTION

REACTIONS (2)
  - Device related infection [Recovered/Resolved]
  - Candida infection [Recovered/Resolved]
